FAERS Safety Report 24079955 (Version 1)
Quarter: 2024Q3

REPORT INFORMATION
  Report Type: Spontaneous
  Country: US (occurrence: None)
  Receive Date: 20240711
  Receipt Date: 20240711
  Transmission Date: 20241016
  Serious: Yes (Other)
  Sender: Public
  Company Number: None

PATIENT
  Age: 19 Year
  Sex: Female
  Weight: 72.45 kg

DRUGS (2)
  1. TOPAMAX [Suspect]
     Active Substance: TOPIRAMATE
     Indication: Adverse event
     Dosage: FREQUENCY : DAILY;?
     Route: 048
     Dates: start: 20231116, end: 20240327
  2. TOPAMAX [Suspect]
     Active Substance: TOPIRAMATE
     Indication: Adverse drug reaction

REACTIONS (2)
  - Paraesthesia [None]
  - Hypoaesthesia [None]

NARRATIVE: CASE EVENT DATE: 20240306
